FAERS Safety Report 16280987 (Version 2)
Quarter: 2020Q2

REPORT INFORMATION
  Report Type: Spontaneous
  Country: US (occurrence: US)
  Receive Date: 20190507
  Receipt Date: 20200422
  Transmission Date: 20200713
  Serious: Yes (Other)
  Sender: FDA-Public Use
  Company Number: US-ASTRAZENECA-2019SE60800

PATIENT
  Age: 14213 Day
  Sex: Female
  Weight: 112.9 kg

DRUGS (38)
  1. PRILOSEC [Suspect]
     Active Substance: OMEPRAZOLE MAGNESIUM
     Indication: GASTROOESOPHAGEAL REFLUX DISEASE
     Dosage: GENERIC
     Route: 065
     Dates: start: 20150730, end: 20160810
  2. LAMOTRIGINE. [Concomitant]
     Active Substance: LAMOTRIGINE
  3. CIPRODEX [Concomitant]
     Active Substance: CIPROFLOXACIN HYDROCHLORIDE\DEXAMETHASONE
  4. CHLORZOXAZONE. [Concomitant]
     Active Substance: CHLORZOXAZONE
  5. NEXIUM [Suspect]
     Active Substance: ESOMEPRAZOLE MAGNESIUM
     Indication: GASTROOESOPHAGEAL REFLUX DISEASE
     Route: 048
     Dates: start: 20020325, end: 20170425
  6. PRILOSEC [Suspect]
     Active Substance: OMEPRAZOLE MAGNESIUM
     Indication: GASTROOESOPHAGEAL REFLUX DISEASE
     Route: 048
     Dates: start: 199501, end: 200203
  7. CEFPROZIL. [Concomitant]
     Active Substance: CEFPROZIL
     Indication: BACTERIAL INFECTION
     Dates: start: 201002, end: 201204
  8. AMLODIPINE BESYLATE. [Concomitant]
     Active Substance: AMLODIPINE BESYLATE
     Indication: HYPERTENSION
     Dates: start: 201102, end: 201305
  9. SPIRONOLACTON [Concomitant]
     Active Substance: SPIRONOLACTONE
  10. OXYCODON-ACETAMINOPHEN [Concomitant]
     Active Substance: ACETAMINOPHEN\OXYCODONE HYDROCHLORIDE
  11. LEVOTHYROXINE. [Concomitant]
     Active Substance: LEVOTHYROXINE
  12. MORPHINE SULFATE. [Concomitant]
     Active Substance: MORPHINE SULFATE
  13. TAMSULOSIN [Concomitant]
     Active Substance: TAMSULOSIN
  14. NEXIUM [Suspect]
     Active Substance: ESOMEPRAZOLE MAGNESIUM
     Indication: GASTROOESOPHAGEAL REFLUX DISEASE
     Route: 048
     Dates: start: 199501, end: 200203
  15. CLONIDINE HCL [Concomitant]
     Active Substance: CLONIDINE HYDROCHLORIDE
     Indication: HYPERTENSION
     Dates: start: 201010, end: 201407
  16. LIOTHYRONINE [Concomitant]
     Active Substance: LIOTHYRONINE
  17. PREVACID [Suspect]
     Active Substance: LANSOPRAZOLE
     Route: 065
     Dates: start: 199501, end: 200203
  18. AZITHROMYCIN ANHYDROUS. [Concomitant]
     Active Substance: AZITHROMYCIN ANHYDROUS
     Indication: BACTERIAL INFECTION
     Dates: start: 201002, end: 201702
  19. KLOR-CON [Concomitant]
     Active Substance: POTASSIUM CHLORIDE
  20. DIAZEPAM. [Concomitant]
     Active Substance: DIAZEPAM
  21. FLUVIRIN NOS [Concomitant]
     Active Substance: INFLUENZA VIRUS VACCINE
  22. HYDROCODON-ACETAMINOPHEN [Concomitant]
     Active Substance: ACETAMINOPHEN\HYDROCODONE
  23. PREDNISONE. [Concomitant]
     Active Substance: PREDNISONE
  24. OFLOXACIN. [Concomitant]
     Active Substance: OFLOXACIN
  25. EXCEDRIN [Concomitant]
     Active Substance: ACETAMINOPHEN\ASPIRIN\CAFFEINE
  26. TESTOSTERONE. [Concomitant]
     Active Substance: TESTOSTERONE
  27. TEMAZEPAM. [Concomitant]
     Active Substance: TEMAZEPAM
  28. CARBAMAZEPINE. [Concomitant]
     Active Substance: CARBAMAZEPINE
  29. IBUPROFEN. [Concomitant]
     Active Substance: IBUPROFEN
  30. OPANA [Concomitant]
     Active Substance: OXYMORPHONE HYDROCHLORIDE
  31. CITALOPRAM [Concomitant]
     Active Substance: CITALOPRAM HYDROBROMIDE
     Indication: SERUM SEROTONIN
     Dates: start: 200702, end: 201706
  32. VENTOLIN [Concomitant]
     Active Substance: ALBUTEROL SULFATE
  33. OFLOXACIN. [Concomitant]
     Active Substance: OFLOXACIN
  34. TIZANIDINE. [Concomitant]
     Active Substance: TIZANIDINE
  35. FUROSEMIDE. [Concomitant]
     Active Substance: FUROSEMIDE
  36. PRILOSEC [Suspect]
     Active Substance: OMEPRAZOLE MAGNESIUM
     Indication: GASTROOESOPHAGEAL REFLUX DISEASE
     Route: 048
     Dates: start: 19980818, end: 20180810
  37. AMLODIPINE BESYLATE AND BENAZEPRIL HYDROCHLORIDE [Concomitant]
     Active Substance: AMLODIPINE BESYLATE\BENAZEPRIL HYDROCHLORIDE
     Indication: HYPERTENSION
     Dates: start: 200911, end: 201007
  38. LISINOPRIL. [Concomitant]
     Active Substance: LISINOPRIL

REACTIONS (3)
  - Chronic kidney disease [Not Recovered/Not Resolved]
  - Tubulointerstitial nephritis [Not Recovered/Not Resolved]
  - Renal failure [Unknown]

NARRATIVE: CASE EVENT DATE: 20100706
